FAERS Safety Report 8209741-1 (Version None)
Quarter: 2012Q1

REPORT INFORMATION
  Report Type: 
  Country: None (occurrence: None)
  Receive Date: 20120228
  Receipt Date: 20110405
  Transmission Date: 20120608
  Serious: Yes (Other)
  Sender: FDA-Public Use
  Company Number: RB-25253-2011

PATIENT
  Sex: Male
  Weight: 3.6741 kg

DRUGS (2)
  1. SUBUTEX [Suspect]
     Indication: DRUG DEPENDENCE
     Dosage: (3 MG TRANSPLACENTAL)
     Route: 064
     Dates: end: 20110306
  2. SUBOXONE [Suspect]
     Indication: DRUG DEPENDENCE
     Dosage: (3 MG TRANSPLACENTAL)
     Route: 064
     Dates: start: 20100527

REACTIONS (2)
  - FOETAL EXPOSURE DURING PREGNANCY [None]
  - DRUG WITHDRAWAL SYNDROME NEONATAL [None]
